FAERS Safety Report 19836233 (Version 1)
Quarter: 2021Q3

REPORT INFORMATION
  Report Type: Spontaneous
  Country: US (occurrence: US)
  Receive Date: 20210916
  Receipt Date: 20210916
  Transmission Date: 20211014
  Serious: Yes (Hospitalization, Other)
  Sender: FDA-Public Use
  Company Number: US-AUROBINDO-AUR-APL-2021-038750

PATIENT
  Age: 41 Year
  Sex: Female
  Weight: 161 kg

DRUGS (3)
  1. PIPERACILLIN AND TAZOBACTAM [Suspect]
     Active Substance: PIPERACILLIN SODIUM\TAZOBACTAM SODIUM
     Indication: PANNICULITIS
     Dosage: UNK
     Route: 065
  2. VANCOMYCIN [Interacting]
     Active Substance: VANCOMYCIN
     Indication: PANNICULITIS
     Dosage: 2 GRAM (LOADING DOSE)
  3. VANCOMYCIN [Interacting]
     Active Substance: VANCOMYCIN
     Dosage: 1.75 GRAM, FOUR TIMES/DAY (MAINTENANCE DOSE)
     Route: 065

REACTIONS (6)
  - Condition aggravated [Recovering/Resolving]
  - Acute kidney injury [Recovering/Resolving]
  - Drug interaction [Recovering/Resolving]
  - Drug clearance decreased [Recovering/Resolving]
  - Drug level above therapeutic [Recovering/Resolving]
  - Nephropathy toxic [Recovering/Resolving]
